FAERS Safety Report 6824727-7 (Version None)
Quarter: 2010Q3

REPORT INFORMATION
  Report Type: 
  Country: None (occurrence: None)
  Receive Date: 20100708
  Receipt Date: 20061118
  Transmission Date: 20110219
  Serious: No
  Sender: FDA-Public Use
  Company Number: US-PFIZER INC-2006147240

PATIENT
  Sex: Female
  Weight: 72.57 kg

DRUGS (10)
  1. CHANTIX [Suspect]
     Indication: SMOKING CESSATION THERAPY
     Dates: start: 20060101
  2. CYMBALTA [Concomitant]
  3. LOPRESSOR [Concomitant]
  4. PLAVIX [Concomitant]
  5. XANAX [Concomitant]
  6. PREVACID [Concomitant]
  7. LIPITOR [Concomitant]
  8. NIASPAN [Concomitant]
  9. ACETYLSALICYLIC ACID [Concomitant]
  10. FISH OIL [Concomitant]

REACTIONS (2)
  - HEADACHE [None]
  - NAUSEA [None]
